FAERS Safety Report 13288509 (Version 6)
Quarter: 2018Q2

REPORT INFORMATION
  Report Type: Spontaneous
  Country: US (occurrence: US)
  Receive Date: 20170302
  Receipt Date: 20180409
  Transmission Date: 20180711
  Serious: Yes (Death, Hospitalization)
  Sender: FDA-Public Use
  Company Number: US-ACTELION-A-US2017-150552

PATIENT
  Age: 76 Year
  Sex: Male

DRUGS (3)
  1. METFORMIN [Concomitant]
     Active Substance: METFORMIN HYDROCHLORIDE
     Dosage: 500 MG, BID
     Dates: start: 20110402, end: 20180320
  2. OPSUMIT [Suspect]
     Active Substance: MACITENTAN
     Indication: PULMONARY ARTERIAL HYPERTENSION
     Dosage: 10 MG, QD
     Route: 048
     Dates: start: 20170213, end: 20180320
  3. METOLAZONE. [Concomitant]
     Active Substance: METOLAZONE
     Dosage: 2.5 MG, PRN

REACTIONS (13)
  - Fall [Recovered/Resolved]
  - Cardio-respiratory arrest [Fatal]
  - Fibrosis [Fatal]
  - Weight increased [Not Recovered/Not Resolved]
  - No adverse event [Unknown]
  - Asthenia [Not Recovered/Not Resolved]
  - Fluid retention [Not Recovered/Not Resolved]
  - Cardiac failure congestive [Unknown]
  - Pulmonary hypertension [Fatal]
  - Overdose [Unknown]
  - Drug dose omission [Unknown]
  - Herpes zoster [Unknown]
  - Exercise lack of [Not Recovered/Not Resolved]

NARRATIVE: CASE EVENT DATE: 20170220
